FAERS Safety Report 18185821 (Version 1)
Quarter: 2020Q3

REPORT INFORMATION
  Report Type: Spontaneous
  Country: ES (occurrence: ES)
  Receive Date: 20200824
  Receipt Date: 20200824
  Transmission Date: 20201103
  Serious: Yes (Other)
  Sender: FDA-Public Use
  Company Number: ES-TEVA-2020-ES-1817047

PATIENT
  Age: 79 Year
  Sex: Female

DRUGS (6)
  1. EMCONCOR COR  2,5 MG COMPRIMIDOS RECUBIERTOS CON PELICULA , 28 COMPRIM [Concomitant]
     Route: 048
     Dates: end: 20200716
  2. TOUJEO 300 UNIDADES/ML SOLOSTAR, SOLUCION INYECTABLE EN PLUMA PRECARGA [Concomitant]
     Route: 058
  3. ADIRO 100 MG COMPRIMIDOS GASTRORRESISTENTES EFG, 30 COMPRIMIDOS (POLIP [Concomitant]
     Active Substance: ASPIRIN
     Route: 048
  4. JANUVIA 100 MG COMPRIMIDOS RECUBIERTOS CON PELICULA , 28 COMPRIMIDOS [Concomitant]
     Route: 048
  5. FUROSEMIDA (1615A) [Concomitant]
     Active Substance: FUROSEMIDE
     Route: 048
  6. CAPECITABINA (1224A) [Suspect]
     Active Substance: CAPECITABINE
     Indication: BREAST CANCER STAGE IV
     Dosage: 04?JUN?2020 1ST CYCLE / 25?JUN?2020 2ND CYCLE / 16?JUL?2020 3RD CYCLE
     Route: 048
     Dates: start: 20200604, end: 20200716

REACTIONS (1)
  - Tongue discolouration [Unknown]

NARRATIVE: CASE EVENT DATE: 20200630
